FAERS Safety Report 9215102 (Version 1)
Quarter: 2013Q2

REPORT INFORMATION
  Report Type: Spontaneous
  Country: US (occurrence: US)
  Receive Date: 20130405
  Receipt Date: 20130405
  Transmission Date: 20140414
  Serious: Yes (Hospitalization, Other)
  Sender: FDA-Public Use
  Company Number: US-BAYER-2013-041332

PATIENT
  Age: 28 Year
  Sex: Female

DRUGS (27)
  1. YAZ [Suspect]
  2. YASMIN [Suspect]
  3. ADVIL [Concomitant]
     Dosage: AS NEEDED
  4. PROTONIX [Concomitant]
     Indication: CROHN^S DISEASE
  5. PROTONIX [Concomitant]
     Indication: CROHN^S DISEASE
  6. MINOCYCLINE [Concomitant]
     Indication: ACNE
     Dosage: DAILY
  7. MORPHINE [Concomitant]
     Dosage: 4 MG, UNK
     Route: 042
  8. REGLAN [Concomitant]
     Dosage: 10 MG, UNK
     Route: 042
  9. GI COCKTAIL [Concomitant]
  10. ATIVAN [Concomitant]
     Dosage: UNK
  11. ATIVAN [Concomitant]
  12. LIBRAX [Concomitant]
     Indication: CROHN^S DISEASE
  13. PREDNISONE [Concomitant]
     Indication: CROHN^S DISEASE
     Dosage: 20 MG, PER DAY ON A TAPPER
  14. SOLU-MEDROL [Concomitant]
  15. LUVOX [Concomitant]
     Dosage: ONE TO TWO TABLETS, QD
  16. PENTASA [Concomitant]
     Indication: CROHN^S DISEASE
     Dosage: 250 MG, QD
     Route: 048
  17. PEROCET [Concomitant]
     Dosage: 5/325 EVERY 6 HOURS,UNK
  18. FLAGYL [Concomitant]
     Indication: PREOPERATIVE CARE
  19. FLAGYL [Concomitant]
     Indication: POSTOPERATIVE CARE
  20. LEVAQUIN [Concomitant]
     Indication: PREOPERATIVE CARE
  21. TORADOL [Concomitant]
  22. ALBUTEROL [Concomitant]
  23. PULMICORT [Concomitant]
     Dosage: 2 PUFF(S), BID
  24. MULTIVITAMINS [Concomitant]
  25. DILAUDID [Concomitant]
  26. AMBIEN [Concomitant]
  27. ZOFRAN [Concomitant]

REACTIONS (2)
  - Portal vein thrombosis [None]
  - Thrombophlebitis superficial [None]
